FAERS Safety Report 10079982 (Version 2)
Quarter: 2014Q2

REPORT INFORMATION
  Report Type: Spontaneous
  Country: AR (occurrence: AR)
  Receive Date: 20140415
  Receipt Date: 20140508
  Transmission Date: 20141212
  Serious: Yes (Hospitalization, Other)
  Sender: FDA-Public Use
  Company Number: AR-ABBVIE-14P-007-1224212-00

PATIENT
  Age: 47 Year
  Sex: Male

DRUGS (7)
  1. RITONAVIR [Suspect]
     Indication: ANTIRETROVIRAL THERAPY
  2. LAMIVUDINE [Interacting]
     Indication: ANTIRETROVIRAL THERAPY
  3. ATAZANAVIR [Interacting]
     Indication: ANTIRETROVIRAL THERAPY
  4. TENOFOVIR [Interacting]
     Indication: ANTIRETROVIRAL THERAPY
  5. MIGRAL [Interacting]
     Indication: HEADACHE
  6. PAROXETINE [Concomitant]
     Indication: DEPRESSION
  7. CLONAZEPAM [Concomitant]
     Indication: PANIC ATTACK

REACTIONS (7)
  - Paraesthesia [Recovered/Resolved]
  - Chills [Recovered/Resolved]
  - Intermittent claudication [Recovered/Resolved]
  - Muscular weakness [Recovered/Resolved]
  - Headache [Recovered/Resolved]
  - Ergot poisoning [Recovered/Resolved]
  - Drug interaction [Recovered/Resolved]
